FAERS Safety Report 7624424-4 (Version None)
Quarter: 2011Q3

REPORT INFORMATION
  Report Type: 
  Country: None (occurrence: None)
  Receive Date: 20110712
  Receipt Date: 20110705
  Transmission Date: 20111222
  Serious: Yes (Hospitalization, Other)
  Sender: FDA-Public Use
  Company Number: 2010SP058603

PATIENT
  Age: 37 Year
  Sex: Female
  Weight: 90.7194 kg

DRUGS (5)
  1. COUMADIN [Suspect]
     Indication: PULMONARY EMBOLISM
     Dates: start: 20081001, end: 20100301
  2. NUVARING [Suspect]
     Indication: CONTRACEPTION
     Dates: start: 20070901, end: 20070901
  3. NUVARING [Suspect]
     Indication: ENDOMETRIOSIS
     Dates: start: 20070901, end: 20070901
  4. NUVARING [Suspect]
     Indication: CONTRACEPTION
     Dates: start: 20080701, end: 20081027
  5. NUVARING [Suspect]
     Indication: ENDOMETRIOSIS
     Dates: start: 20080701, end: 20081027

REACTIONS (22)
  - ADNEXA UTERI CYST [None]
  - EMOTIONAL DISORDER [None]
  - VIRAL INFECTION [None]
  - PANIC ATTACK [None]
  - PULMONARY INFARCTION [None]
  - ANXIETY DISORDER [None]
  - PULMONARY EMBOLISM [None]
  - ANAEMIA [None]
  - MENTAL DISORDER [None]
  - COLITIS [None]
  - WEIGHT DECREASED [None]
  - SALPINGITIS [None]
  - HYPERCOAGULATION [None]
  - DEPRESSION [None]
  - ATELECTASIS [None]
  - GASTROENTERITIS VIRAL [None]
  - TACHYCARDIA [None]
  - PULMONARY VALVE INCOMPETENCE [None]
  - CHEST PAIN [None]
  - CHANGE OF BOWEL HABIT [None]
  - TRICUSPID VALVE INCOMPETENCE [None]
  - MITRAL VALVE INCOMPETENCE [None]
